FAERS Safety Report 21199528 (Version 3)
Quarter: 2023Q1

REPORT INFORMATION
  Report Type: Report from Study
  Country: US (occurrence: US)
  Receive Date: 20220811
  Receipt Date: 20230320
  Transmission Date: 20230417
  Serious: Yes (Hospitalization, Other)
  Sender: FDA-Public Use
  Company Number: US-TAKEDA-2022TUS053683

PATIENT
  Age: 75 Year
  Sex: Male

DRUGS (12)
  1. TEDUGLUTIDE [Suspect]
     Active Substance: TEDUGLUTIDE
     Indication: Short-bowel syndrome
     Dosage: 1.1 MILLIGRAM, QD
     Route: 058
     Dates: start: 20210223, end: 20220922
  2. TEDUGLUTIDE [Suspect]
     Active Substance: TEDUGLUTIDE
     Indication: Short-bowel syndrome
     Dosage: 1.1 MILLIGRAM, QD
     Route: 058
     Dates: start: 20210223, end: 20220922
  3. TEDUGLUTIDE [Suspect]
     Active Substance: TEDUGLUTIDE
     Indication: Short-bowel syndrome
     Dosage: 1.1 MILLIGRAM, QD
     Route: 058
     Dates: start: 20210223, end: 20220922
  4. TEDUGLUTIDE [Suspect]
     Active Substance: TEDUGLUTIDE
     Indication: Short-bowel syndrome
     Dosage: 1.1 MILLIGRAM, QD
     Route: 058
     Dates: start: 20210223, end: 20220922
  5. TEDUGLUTIDE [Suspect]
     Active Substance: TEDUGLUTIDE
     Dosage: UNK
     Route: 065
     Dates: start: 20220925
  6. TEDUGLUTIDE [Suspect]
     Active Substance: TEDUGLUTIDE
     Dosage: UNK
     Route: 065
     Dates: start: 20220925
  7. TEDUGLUTIDE [Suspect]
     Active Substance: TEDUGLUTIDE
     Dosage: UNK
     Route: 065
     Dates: start: 20220925
  8. TEDUGLUTIDE [Suspect]
     Active Substance: TEDUGLUTIDE
     Dosage: UNK
     Route: 065
     Dates: start: 20220925
  9. TEDUGLUTIDE [Suspect]
     Active Substance: TEDUGLUTIDE
     Dosage: 11 MILLIGRAM, QD
     Route: 058
     Dates: start: 20210223, end: 20230314
  10. TEDUGLUTIDE [Suspect]
     Active Substance: TEDUGLUTIDE
     Dosage: 11 MILLIGRAM, QD
     Route: 058
     Dates: start: 20210223, end: 20230314
  11. TEDUGLUTIDE [Suspect]
     Active Substance: TEDUGLUTIDE
     Dosage: 11 MILLIGRAM, QD
     Route: 058
     Dates: start: 20210223, end: 20230314
  12. TEDUGLUTIDE [Suspect]
     Active Substance: TEDUGLUTIDE
     Dosage: 11 MILLIGRAM, QD
     Route: 058
     Dates: start: 20210223, end: 20230314

REACTIONS (6)
  - Suspected COVID-19 [Unknown]
  - Weight decreased [Unknown]
  - Malnutrition [Unknown]
  - Faecaloma [Recovered/Resolved]
  - Fall [Recovered/Resolved]
  - Femoral neck fracture [Recovered/Resolved]

NARRATIVE: CASE EVENT DATE: 20220801
